FAERS Safety Report 8959801 (Version 1)
Quarter: 2012Q4

REPORT INFORMATION
  Report Type: 
  Country: US (occurrence: US)
  Receive Date: 20121212
  Receipt Date: 20121212
  Transmission Date: 20130627
  Serious: No
  Sender: FDA-Public Use
  Company Number: US-TEVA-332933USA

PATIENT
  Sex: Female

DRUGS (1)
  1. BUDESONIDE [Suspect]
     Indication: SINUS OPERATION
     Dosage: 0.5mg/2ml
     Route: 045
     Dates: start: 201203

REACTIONS (4)
  - Photosensitivity reaction [Unknown]
  - Rash [Unknown]
  - Erythema [Unknown]
  - Drug prescribing error [Unknown]
